FAERS Safety Report 18239021 (Version 3)
Quarter: 2020Q3

REPORT INFORMATION
  Report Type: Spontaneous
  Country: US (occurrence: US)
  Receive Date: 20200907
  Receipt Date: 20200919
  Transmission Date: 20201103
  Serious: No
  Sender: FDA-Public Use
  Company Number: US-TEVA-2020-US-1826105

PATIENT

DRUGS (27)
  1. VITAMIN D3 [Concomitant]
     Active Substance: CHOLECALCIFEROL
     Dosage: 5000 IU/125 MCG
     Route: 065
  2. BIOTIN [Concomitant]
     Active Substance: BIOTIN
     Dosage: 5000 IU (INTERNATIONAL UNIT) DAILY;
     Route: 065
  3. XIIDRA [Concomitant]
     Active Substance: LIFITEGRAST
     Dosage: 5 %, 1 DROP MORNING AND EVENING
     Route: 061
  4. BAYER ASPIRIN [Concomitant]
     Active Substance: ASPIRIN
     Dosage: 81 MG, 1 TABLET AT BEDTIME
     Route: 065
  5. NORVASC [Suspect]
     Active Substance: AMLODIPINE BESYLATE
     Dosage: 25 MILLIGRAM DAILY;
     Route: 065
     Dates: start: 20200820
  6. POTASSIUM [Concomitant]
     Active Substance: POTASSIUM
     Dosage: 99 MILLIGRAM DAILY;
     Route: 065
  7. MAGNESIUM TAURATE [Concomitant]
     Dosage: 200 MILLIGRAM DAILY; 100 MG, MORNING AND EVENING
     Route: 065
  8. ESCITALOPRAM [Concomitant]
     Active Substance: ESCITALOPRAM OXALATE
     Dosage: 10 MILLIGRAM DAILY; 10 MG, 1 TABLET AT BEDTIME
     Route: 065
  9. FOLIC ACID. [Concomitant]
     Active Substance: FOLIC ACID
     Dosage: 1 MILLIGRAM DAILY;
     Route: 065
  10. HYDRALAZINE [Suspect]
     Active Substance: HYDRALAZINE HYDROCHLORIDE
     Dosage: 75 MILLIGRAM DAILY;
     Route: 065
  11. K2 [Concomitant]
     Active Substance: JWH-018
     Dosage: 100 MICROGRAM DAILY;
     Route: 065
  12. E [Concomitant]
     Dosage: 800 IU (INTERNATIONAL UNIT) DAILY; 400 IU, MORNING AND EVENING
     Route: 065
  13. AMLODIPINE BESYLATE. [Concomitant]
     Active Substance: AMLODIPINE BESYLATE
     Dosage: 5 MILLIGRAM DAILY;
     Route: 065
  14. MELATONIN [Concomitant]
     Active Substance: MELATONIN
     Dosage: 5 MILLIGRAM DAILY; 5 MG, 1 TABLET AT BEDTIME
     Route: 065
  15. CLEMASTINE [Concomitant]
     Active Substance: CLEMASTINE
     Dosage: 1.34 MILLIGRAM DAILY; 1 TABLET AT BED TIME
     Route: 065
  16. EPINASTINE. [Concomitant]
     Active Substance: EPINASTINE HYDROCHLORIDE
     Dosage: 1 DROP MORNING AND EVENING
     Route: 061
  17. OMEGA?3 ACIDS [Concomitant]
     Active Substance: OMEGA-3 FATTY ACIDS
     Dosage: 2560 MILLIGRAM DAILY; EPA 650 MG, DHA 45 MG AND OTHER 180 MG, MORNING AND EVENING
     Route: 065
  18. LOSARTAN. [Concomitant]
     Active Substance: LOSARTAN
     Dosage: 100 MILLIGRAM DAILY;
     Route: 065
  19. APIRONOLACTONE [Concomitant]
     Dosage: 25 MILLIGRAM DAILY; 25 MG, 1 TABLET AT NOON
     Route: 065
  20. ALENDRONATE [Concomitant]
     Active Substance: ALENDRONATE SODIUM
     Dosage: 10 MILLIGRAM DAILY; 70 MG, 1 TABLET WEEKLY
     Route: 065
  21. METOPROLOL ER SUCCINATE ACTAVIS [Suspect]
     Active Substance: METOPROLOL SUCCINATE
     Dosage: I TAKE 50MG IN THE MORNING AND 25MG AT BEDTIME
     Route: 065
     Dates: start: 20200809
  22. COENZYME Q10 [Concomitant]
     Active Substance: DIETARY SUPPLEMENT\UBIDECARENONE
     Dosage: 200 MILLIGRAM DAILY;
     Route: 065
  23. AREDS 2 [Concomitant]
     Active Substance: MINERALS\VITAMINS
     Dosage: MORNING AND EVENING
  24. STOOL SOFTENER (DOCUSATE SODIUM) [Concomitant]
     Active Substance: DOCUSATE SODIUM
     Dosage: 100 MG, 4 TABLETS AT BEDTIME
     Route: 065
  25. METOPROLOL ER SUCCINATE ACTAVIS [Suspect]
     Active Substance: METOPROLOL SUCCINATE
     Indication: HYPERTENSION
     Dosage: USING FOR MANY YEARS
     Route: 065
  26. VITAMIN B12 [Concomitant]
     Active Substance: CYANOCOBALAMIN
     Dosage: 1000 MICROGRAM DAILY;
     Route: 060
  27. NASACORT ALLERGY 24HR [Concomitant]
     Active Substance: TRIAMCINOLONE ACETONIDE
     Dosage: 24 HOUR, MORNING AND EVENING
     Route: 065

REACTIONS (8)
  - Dizziness [Not Recovered/Not Resolved]
  - Gait disturbance [Not Recovered/Not Resolved]
  - Product quality issue [Unknown]
  - Product substitution issue [Unknown]
  - Drug ineffective [Unknown]
  - Feeling abnormal [Not Recovered/Not Resolved]
  - Blood pressure increased [Not Recovered/Not Resolved]
  - Pulse abnormal [Not Recovered/Not Resolved]

NARRATIVE: CASE EVENT DATE: 20200813
